FAERS Safety Report 5527512-1 (Version None)
Quarter: 2007Q4

REPORT INFORMATION
  Report Type: 
  Country: None (occurrence: None)
  Receive Date: 20071128
  Receipt Date: 20071126
  Transmission Date: 20080405
  Serious: Yes (Other)
  Sender: FDA-Public Use
  Company Number: FR-WYE-G00672107

PATIENT
  Sex: Female

DRUGS (8)
  1. EFFEXOR XR [Suspect]
     Route: 048
     Dates: end: 20070719
  2. NOCTRAN 10 [Suspect]
     Route: 048
  3. TAHOR [Concomitant]
  4. ISOPTIN [Concomitant]
     Dosage: 2 MG TOTAL DAILY
  5. PLAVIX [Concomitant]
  6. LEVOTHYROXINE SODIUM [Concomitant]
     Dosage: 125 MG TOTAL DAILY
  7. DEPAKOTE [Suspect]
     Route: 048
  8. MEDIATOR [Suspect]
     Route: 048

REACTIONS (2)
  - MANIA [None]
  - PSYCHIATRIC DECOMPENSATION [None]
